FAERS Safety Report 9022526 (Version 2)
Quarter: 2014Q1

REPORT INFORMATION
  Report Type: Spontaneous
  Country: US (occurrence: US)
  Receive Date: 20130118
  Receipt Date: 20140117
  Transmission Date: 20141002
  Serious: No
  Sender: FDA-Public Use
  Company Number: US-GLAXOSMITHKLINE-A0957794A

PATIENT
  Sex: Female

DRUGS (12)
  1. PROMACTA [Suspect]
     Indication: IMMUNE THROMBOCYTOPENIC PURPURA
     Dosage: 50MG AT NIGHT
     Route: 048
     Dates: start: 2004
  2. PERCOCET [Suspect]
     Indication: BACK PAIN
     Route: 048
     Dates: start: 1991
  3. MS CONTIN [Concomitant]
  4. PERCOCET [Concomitant]
  5. ATIVAN [Concomitant]
  6. FLEXERIL [Concomitant]
  7. BENADRYL [Concomitant]
  8. PRILOSEC [Concomitant]
  9. LEVOTHYROXINE [Concomitant]
  10. PROMETHAZINE [Concomitant]
  11. CITALOPRAM [Concomitant]
  12. IVIG [Concomitant]
     Dates: end: 2006

REACTIONS (5)
  - Vomiting [Recovering/Resolving]
  - Diarrhoea [Unknown]
  - Nausea [Unknown]
  - Epigastric discomfort [Not Recovered/Not Resolved]
  - Nasopharyngitis [Unknown]
